FAERS Safety Report 5156343-X (Version None)
Quarter: 2006Q4

REPORT INFORMATION
  Report Type: 
  Country: None (occurrence: None)
  Receive Date: 20061122
  Receipt Date: 20061120
  Transmission Date: 20070319
  Serious: Yes (Life-Threatening)
  Sender: FDA-Public Use
  Company Number: FR-GLAXOSMITHKLINE-B0447495A

PATIENT
  Age: 59 Year
  Sex: Male

DRUGS (2)
  1. CLAMOXYL [Suspect]
     Indication: TOOTH EXTRACTION
     Route: 065
     Dates: start: 20060601, end: 20060601
  2. ATARAX [Concomitant]
     Indication: TOOTH EXTRACTION
     Route: 065
     Dates: start: 20060601, end: 20060601

REACTIONS (3)
  - ANAPHYLACTIC SHOCK [None]
  - ERYTHEMA [None]
  - HAEMODYNAMIC INSTABILITY [None]
